FAERS Safety Report 8042567-0 (Version None)
Quarter: 2012Q1

REPORT INFORMATION
  Report Type: 
  Country: None (occurrence: None)
  Receive Date: 20120112
  Receipt Date: 20120109
  Transmission Date: 20120608
  Serious: Yes (Disabling, Other)
  Sender: FDA-Public Use
  Company Number: US-PFIZER INC-2012006541

PATIENT
  Sex: Female
  Weight: 90.7 kg

DRUGS (1)
  1. LYRICA [Suspect]
     Indication: PAIN
     Dosage: 400 MG, DAILY
     Dates: start: 20111001

REACTIONS (3)
  - WHEELCHAIR USER [None]
  - PAIN [None]
  - DRUG INEFFECTIVE [None]
